FAERS Safety Report 5780019-9 (Version None)
Quarter: 2008Q2

REPORT INFORMATION
  Report Type: 
  Country: None (occurrence: None)
  Receive Date: 20080620
  Receipt Date: 20080619
  Transmission Date: 20081010
  Serious: Yes (Life-Threatening, Hospitalization)
  Sender: FDA-Public Use
  Company Number: DE-BRISTOL-MYERS SQUIBB COMPANY-14173157

PATIENT
  Age: 77 Year
  Sex: Female

DRUGS (2)
  1. CARBOPLATIN [Suspect]
     Indication: NEOPLASM MALIGNANT
     Dosage: INTERRUPTED ON 11-APR-2008
     Route: 042
     Dates: start: 20080411, end: 20080411
  2. TOPOTECAN HCL [Suspect]
     Indication: NEOPLASM MALIGNANT
     Dosage: INTERRUPTED ON 11-APR-2008. TOPOTECAN HCL, 1.4 MG, INTRAVENOUS. THERAPY DATE: 09-APR-08 TO UNKNOWN.
     Route: 042
     Dates: start: 20080409, end: 20080411

REACTIONS (3)
  - ILEUS [None]
  - NAUSEA [None]
  - VOMITING [None]
